FAERS Safety Report 10521067 (Version 4)
Quarter: 2014Q4

REPORT INFORMATION
  Report Type: Spontaneous
  Country: US (occurrence: US)
  Receive Date: 20141016
  Receipt Date: 20141128
  Transmission Date: 20150528
  Serious: Yes (Hospitalization)
  Sender: FDA-Public Use
  Company Number: US-UNITED THERAPEUTICS-UNT-2014-008074

PATIENT
  Age: 59 Year
  Sex: Female
  Weight: 63.94 kg

DRUGS (3)
  1. REVATIO [Concomitant]
     Active Substance: SILDENAFIL CITRATE
     Indication: PRODUCT USED FOR UNKNOWN INDICATION
  2. REMODULIN [Suspect]
     Active Substance: TREPROSTINIL
     Indication: PULMONARY HYPERTENSION
     Dosage: 0.01875 ?G/KG, CONTINUING
     Route: 058
     Dates: start: 20140221
  3. REMODULIN [Suspect]
     Active Substance: TREPROSTINIL
     Indication: COR PULMONALE CHRONIC
     Dosage: 0.01875 ?G/KG, CONTINUING
     Route: 058
     Dates: start: 20140221

REACTIONS (6)
  - Gastrooesophageal reflux disease [Unknown]
  - Sepsis [Unknown]
  - Weight decreased [Unknown]
  - Infusion site pain [Unknown]
  - Septic shock [Unknown]
  - Diarrhoea [Unknown]

NARRATIVE: CASE EVENT DATE: 2014
